FAERS Safety Report 8677191 (Version 3)
Quarter: 2012Q4

REPORT INFORMATION
  Report Type: 
  Country: US (occurrence: US)
  Receive Date: 20120723
  Receipt Date: 20120918
  Transmission Date: 20130627
  Serious: Yes (Other)
  Sender: FDA-Public Use
  Company Number: US-JNJFOC-20120708927

PATIENT
  Age: 82 Year
  Sex: Female

DRUGS (2)
  1. EUCALYPTOL\MENTHOL\METHYL SALICYLATE\THYMOL [Suspect]
     Indication: DENTAL DISORDER PROPHYLAXIS
     Dosage: About a teaspooon
     Route: 048
     Dates: end: 20120723
  2. UNKNOWN MEDICATION [Concomitant]
     Route: 065

REACTIONS (1)
  - Dental caries [Not Recovered/Not Resolved]
